FAERS Safety Report 6321142-X (Version None)
Quarter: 2009Q3

REPORT INFORMATION
  Report Type: 
  Country: None (occurrence: None)
  Receive Date: 20090822
  Receipt Date: 20090306
  Transmission Date: 20100115
  Serious: No
  Sender: FDA-Public Use
  Company Number: US-ABBOTT-08P-163-0481382-00

PATIENT
  Sex: Female
  Weight: 88.076 kg

DRUGS (2)
  1. NIASPAN [Suspect]
     Indication: BLOOD TRIGLYCERIDES INCREASED
     Dosage: EVERY NIGHT
     Route: 048
     Dates: start: 20080801, end: 20090201
  2. NIASPAN [Suspect]
     Dosage: 0.5 EVERY NIGHT
     Route: 048
     Dates: start: 20090201

REACTIONS (4)
  - BLOOD GLUCOSE INCREASED [None]
  - BLOOD TRIGLYCERIDES INCREASED [None]
  - GLUCOSE TOLERANCE IMPAIRED [None]
  - THYROID DISORDER [None]
